FAERS Safety Report 11798458 (Version 2)
Quarter: 2015Q4

REPORT INFORMATION
  Report Type: Report from Study
  Country: US (occurrence: US)
  Receive Date: 20151203
  Receipt Date: 20151216
  Transmission Date: 20160305
  Serious: Yes (Hospitalization, Other)
  Sender: FDA-Public Use
  Company Number: US-BAYER-2015-466944

PATIENT
  Age: 50 Year
  Sex: Female
  Weight: 81.18 kg

DRUGS (21)
  1. AMLODIPINE [Concomitant]
     Active Substance: AMLODIPINE BESYLATE
  2. ZANTAC [Concomitant]
     Active Substance: RANITIDINE HYDROCHLORIDE
  3. LUMIGAN [Concomitant]
     Active Substance: BIMATOPROST
  4. TUMS [Concomitant]
     Active Substance: CALCIUM CARBONATE
  5. PROVENTIL [Concomitant]
     Active Substance: ALBUTEROL
  6. BRIMONIDINE [Concomitant]
     Active Substance: BRIMONIDINE TARTRATE
  7. TRAVATAN [Concomitant]
     Active Substance: TRAVOPROST
  8. TRAMADOL. [Concomitant]
     Active Substance: TRAMADOL
  9. ARTIFICIAL TEARS [BENZALKONIUM CHLORIDE,EDETATE DISODIUM,POLYVINYL [Concomitant]
  10. STIVARGA [Suspect]
     Active Substance: REGORAFENIB
     Indication: RECTAL CANCER
     Dosage: 160 MG, DAILY, DAYS 1-21
     Route: 048
     Dates: start: 20151104
  11. STIVARGA [Suspect]
     Active Substance: REGORAFENIB
     Indication: COLON CANCER
     Dosage: 160 MG, DAILY, DAYS 1-21
     Route: 048
     Dates: start: 20151104
  12. IMODIUM [Concomitant]
     Active Substance: LOPERAMIDE HYDROCHLORIDE
  13. AZOPT [Concomitant]
     Active Substance: BRINZOLAMIDE
  14. SYMBICORT [Concomitant]
     Active Substance: BUDESONIDE\FORMOTEROL FUMARATE DIHYDRATE
  15. ALBUTEROL. [Concomitant]
     Active Substance: ALBUTEROL
  16. PROCHLORPERAZINE. [Concomitant]
     Active Substance: PROCHLORPERAZINE
  17. MONTELUKAST [Concomitant]
     Active Substance: MONTELUKAST SODIUM
  18. PRAVASTATIN [Concomitant]
     Active Substance: PRAVASTATIN\PRAVASTATIN SODIUM
  19. METFORMIN [Concomitant]
     Active Substance: METFORMIN HYDROCHLORIDE
  20. GABAPENTIN. [Concomitant]
     Active Substance: GABAPENTIN
  21. TUSSIN CF [Concomitant]
     Active Substance: DEXTROMETHORPHAN HYDROBROMIDE\GUAIFENESIN\PHENYLEPHRINE HYDROCHLORIDE

REACTIONS (11)
  - Dysgeusia [Unknown]
  - Abdominal pain upper [Unknown]
  - Feeding disorder [Unknown]
  - Chromaturia [None]
  - Product use issue [None]
  - Ageusia [Unknown]
  - Dehydration [Unknown]
  - Dysphonia [Unknown]
  - Fluid intake reduced [Unknown]
  - Cough [Unknown]
  - Decreased appetite [Unknown]

NARRATIVE: CASE EVENT DATE: 2015
